FAERS Safety Report 6196588-3 (Version None)
Quarter: 2009Q2

REPORT INFORMATION
  Report Type: 
  Country: None (occurrence: None)
  Receive Date: 20090518
  Receipt Date: 20090508
  Transmission Date: 20091009
  Serious: Yes (Hospitalization)
  Sender: FDA-Public Use
  Company Number: 2009JP002721

PATIENT
  Age: 47 Year
  Sex: Female

DRUGS (4)
  1. PROGRAF [Suspect]
     Indication: SYSTEMIC LUPUS ERYTHEMATOSUS
  2. ISONIAZID [Suspect]
     Dosage: 100 MG, /D, ORAL
     Route: 048
  3. PREDNISOLONE [Concomitant]
  4. PYRIDOSTIGMINE BROMIDE [Concomitant]

REACTIONS (5)
  - APLASIA PURE RED CELL [None]
  - FATIGUE [None]
  - IRON BINDING CAPACITY UNSATURATED DECREASED [None]
  - PALPITATIONS [None]
  - SERUM FERRITIN INCREASED [None]
